APPROVED DRUG PRODUCT: KANAMYCIN SULFATE
Active Ingredient: KANAMYCIN SULFATE
Strength: EQ 500MG BASE/2ML
Dosage Form/Route: INJECTABLE;INJECTION
Application: A063022 | Product #001
Applicant: LOCH PHARMACEUTICALS INC
Approved: Jul 31, 1992 | RLD: No | RS: No | Type: DISCN